FAERS Safety Report 4757928-2 (Version None)
Quarter: 2005Q3

REPORT INFORMATION
  Report Type: 
  Country: None (occurrence: None)
  Receive Date: 20050831
  Receipt Date: 20050826
  Transmission Date: 20060218
  Serious: Yes (Death)
  Sender: FDA-Public Use
  Company Number: CH-ABBOTT-05P-151-0309602-00

PATIENT
  Age: 87 Year
  Sex: Female
  Weight: 51 kg

DRUGS (14)
  1. BIAXIN [Suspect]
     Indication: DUODENAL ULCER
     Route: 048
     Dates: start: 20050704, end: 20050708
  2. BIAXIN [Suspect]
     Indication: HELICOBACTER PYLORI IDENTIFICATION TEST POSITIVE
  3. ISOPTIN RETARD FILMTABLETTEN [Suspect]
     Indication: ATRIAL FIBRILLATION
     Route: 048
     Dates: start: 20050704, end: 20050714
  4. ISOPTIN RETARD FILMTABLETTEN [Suspect]
     Indication: ATRIAL FLUTTER
  5. AMOXICILLIN TRIHYDRATE [Suspect]
     Indication: DUODENAL ULCER
     Route: 048
     Dates: start: 20050704, end: 20050708
  6. AMOXICILLIN TRIHYDRATE [Suspect]
     Indication: HELICOBACTER PYLORI IDENTIFICATION TEST POSITIVE
  7. DIGOXIN [Concomitant]
     Indication: ATRIAL FIBRILLATION
     Route: 048
     Dates: start: 20050715, end: 20050716
  8. DIGOXIN [Concomitant]
     Indication: ATRIAL FLUTTER
  9. MOTILIUM [Concomitant]
     Indication: DUODENAL ULCER
     Route: 048
     Dates: start: 20050704, end: 20050708
  10. MOTILIUM [Concomitant]
     Indication: HELICOBACTER PYLORI IDENTIFICATION TEST POSITIVE
  11. PHENPROCOUMON [Concomitant]
     Indication: ATRIAL FIBRILLATION
     Route: 048
     Dates: start: 20050701
  12. PHENPROCOUMON [Concomitant]
     Indication: ATRIAL FLUTTER
  13. PANTOPRAZOLE SODIUM [Concomitant]
     Indication: DUODENAL ULCER
     Route: 048
     Dates: start: 20050708
  14. PANTOPRAZOLE SODIUM [Concomitant]
     Indication: HELICOBACTER PYLORI IDENTIFICATION TEST POSITIVE

REACTIONS (8)
  - ANOREXIA [None]
  - APATHY [None]
  - APHASIA [None]
  - ASTHENIA [None]
  - PULMONARY OEDEMA [None]
  - RENAL FAILURE ACUTE [None]
  - VENTRICULAR FIBRILLATION [None]
  - VENTRICULAR FLUTTER [None]
